FAERS Safety Report 24104721 (Version 2)
Quarter: 2024Q3

REPORT INFORMATION
  Report Type: Spontaneous
  Country: PT (occurrence: PT)
  Receive Date: 20240717
  Receipt Date: 20240807
  Transmission Date: 20241016
  Serious: Yes (Death, Other)
  Sender: GILEAD
  Company Number: PT-GILEAD-2024-0680894

PATIENT
  Age: 69 Year
  Sex: Female

DRUGS (3)
  1. SACITUZUMAB GOVITECAN-HZIY [Suspect]
     Active Substance: SACITUZUMAB GOVITECAN-HZIY
     Indication: Transitional cell carcinoma
     Dosage: UNK, 21-JUNE, AFTER FIRST CYCLE
     Route: 065
  2. SACITUZUMAB GOVITECAN-HZIY [Suspect]
     Active Substance: SACITUZUMAB GOVITECAN-HZIY
     Dosage: UNK, 28-JUNE, D1 OF THE 2ND CYCLE
     Route: 065
  3. SACITUZUMAB GOVITECAN-HZIY [Suspect]
     Active Substance: SACITUZUMAB GOVITECAN-HZIY
     Dosage: UNK, 28-JUNE, D2 OF SACITUZUMAB ADMINISTRATION
     Route: 065

REACTIONS (4)
  - Intestinal perforation [Fatal]
  - Sepsis [Fatal]
  - Neutropenia [Fatal]
  - Rash [Unknown]
